FAERS Safety Report 9839002 (Version 2)
Quarter: 2014Q1

REPORT INFORMATION
  Report Type: Spontaneous
  Country: US (occurrence: US)
  Receive Date: 20140123
  Receipt Date: 20140304
  Transmission Date: 20141002
  Serious: Yes (Hospitalization)
  Sender: FDA-Public Use
  Company Number: US-ROXANE LABORATORIES, INC.-2014-RO-00079RO

PATIENT
  Age: 24 Year
  Sex: Female

DRUGS (4)
  1. MYCOPHENOLATE MOFETIL [Suspect]
     Indication: IMMUNOSUPPRESSION
     Route: 065
  2. PREDNISONE [Suspect]
     Indication: ACUTE GRAFT VERSUS HOST DISEASE IN INTESTINE
     Route: 065
  3. TACROLIMUS [Suspect]
     Indication: ACUTE GRAFT VERSUS HOST DISEASE IN INTESTINE
     Route: 065
  4. AMPHOTERICIN B [Suspect]
     Indication: HISTOPLASMOSIS DISSEMINATED
     Route: 065

REACTIONS (7)
  - Acute graft versus host disease in intestine [Unknown]
  - Histoplasmosis disseminated [Unknown]
  - Coombs positive haemolytic anaemia [Unknown]
  - Hypokalaemia [Unknown]
  - Renal failure [Unknown]
  - Pneumonia respiratory syncytial viral [Unknown]
  - Sepsis [Unknown]
